FAERS Safety Report 6561223-9 (Version None)
Quarter: 2010Q1

REPORT INFORMATION
  Report Type: 
  Country: None (occurrence: None)
  Receive Date: 20100130
  Receipt Date: 20091007
  Transmission Date: 20100710
  Serious: No
  Sender: FDA-Public Use
  Company Number: US-ABBOTT-09P-163-0602151-00

PATIENT
  Sex: Female
  Weight: 66.284 kg

DRUGS (4)
  1. HUMIRA [Suspect]
     Indication: PSORIASIS
     Route: 058
     Dates: start: 20080101
  2. TRI-EST [Concomitant]
     Indication: HORMONE REPLACEMENT THERAPY
  3. NEXIUM [Concomitant]
     Indication: GASTROOESOPHAGEAL REFLUX DISEASE
     Route: 048
  4. ZANTAC [Concomitant]
     Indication: GASTROOESOPHAGEAL REFLUX DISEASE
     Dosage: OTC-NOT SURE OF STRENGTH
     Route: 048

REACTIONS (2)
  - INJECTION SITE HAEMATOMA [None]
  - INJECTION SITE PAIN [None]
